FAERS Safety Report 9253328 (Version 2)
Quarter: 2013Q2

REPORT INFORMATION
  Report Type: Spontaneous
  Country: US (occurrence: US)
  Receive Date: 20130424
  Receipt Date: 20130618
  Transmission Date: 20140414
  Serious: No
  Sender: FDA-Public Use
  Company Number: US-009507513-1304USA014385

PATIENT
  Sex: Female
  Weight: 51.25 kg

DRUGS (1)
  1. NUVARING [Suspect]
     Dosage: UNK

REACTIONS (4)
  - Incorrect drug administration duration [Unknown]
  - Inappropriate schedule of drug administration [Unknown]
  - Incorrect storage of drug [Unknown]
  - No adverse event [Unknown]
